FAERS Safety Report 6957542-4 (Version None)
Quarter: 2010Q3

REPORT INFORMATION
  Report Type: 
  Country: None (occurrence: None)
  Receive Date: 20100831
  Receipt Date: 20100820
  Transmission Date: 20110219
  Serious: Yes (Other)
  Sender: FDA-Public Use
  Company Number: US-ELI_LILLY_AND_COMPANY-US201005003834

PATIENT
  Sex: Male
  Weight: 101.13 kg

DRUGS (10)
  1. BYETTA [Suspect]
     Indication: TYPE 2 DIABETES MELLITUS
     Dosage: 10 UG, UNKNOWN
     Dates: start: 20060101, end: 20100501
  2. HYDROCHLOROTHIAZIDE [Concomitant]
  3. LIPITOR [Concomitant]
     Indication: HYPERLIPIDAEMIA
  4. CARVEDILOL [Concomitant]
  5. AVAPRO [Concomitant]
  6. ASPIRIN [Concomitant]
  7. AMARYL [Concomitant]
  8. SYNTHROID [Concomitant]
  9. VITAMIN B-12 [Concomitant]
  10. KAYEXALATE [Concomitant]

REACTIONS (4)
  - BLOOD CREATININE INCREASED [None]
  - BLOOD UREA INCREASED [None]
  - PANCREATITIS [None]
  - WEIGHT DECREASED [None]
